FAERS Safety Report 6322780-0 (Version None)
Quarter: 2009Q3

REPORT INFORMATION
  Report Type: 
  Country: None (occurrence: None)
  Receive Date: 20090824
  Receipt Date: 20090302
  Transmission Date: 20100115
  Serious: No
  Sender: FDA-Public Use
  Company Number: US-ABBOTT-09P-163-0560584-00

PATIENT
  Sex: Female
  Weight: 63.56 kg

DRUGS (9)
  1. NIASPAN [Suspect]
     Indication: BLOOD CHOLESTEROL INCREASED
     Route: 048
     Dates: start: 20081001, end: 20090215
  2. NIASPAN [Suspect]
     Route: 048
     Dates: start: 20090216
  3. PREVACID [Concomitant]
     Indication: HIATUS HERNIA
  4. METFORMIN HCL [Concomitant]
     Indication: DIABETES MELLITUS
  5. TOPROL-XL [Concomitant]
     Indication: MYOCARDIAL INFARCTION
  6. ISOSORBIDE DINITRATE [Concomitant]
     Indication: ANGINA PECTORIS
  7. CARDIZEM [Concomitant]
     Indication: HYPERTENSION
  8. FORTICAL [Concomitant]
     Indication: OSTEOPOROSIS
  9. MELOXICAM [Concomitant]
     Indication: ARTHRITIS

REACTIONS (3)
  - EAR DISCOMFORT [None]
  - PARAESTHESIA [None]
  - SKIN BURNING SENSATION [None]
